FAERS Safety Report 9703750 (Version 1)
Quarter: 2013Q4

REPORT INFORMATION
  Report Type: Spontaneous
  Country: US (occurrence: None)
  Receive Date: 20131121
  Receipt Date: 20131121
  Transmission Date: 20140711
  Serious: Yes (Other)
  Sender: FDA-Public Use
  Company Number: None

PATIENT
  Age: 47 Year
  Sex: Female

DRUGS (1)
  1. COPAXONE [Suspect]
     Indication: MULTIPLE SCLEROSIS
     Dosage: 20 MCG  ONCE DAILY  SQ
     Route: 058
     Dates: start: 20131010

REACTIONS (6)
  - Injection site rash [None]
  - Erythema [None]
  - Skin irritation [None]
  - Drug hypersensitivity [None]
  - Local swelling [None]
  - Rash pruritic [None]
